FAERS Safety Report 5365347-3 (Version None)
Quarter: 2007Q2

REPORT INFORMATION
  Report Type: 
  Country: None (occurrence: None)
  Receive Date: 20070621
  Receipt Date: 20070612
  Transmission Date: 20071010
  Serious: Yes (Other)
  Sender: FDA-Public Use
  Company Number: JP-ROCHE-490742

PATIENT
  Age: 6 Year
  Sex: Male

DRUGS (5)
  1. TAMIFLU [Suspect]
     Dosage: FORM: DRY SYRUP.
     Route: 048
     Dates: start: 20070317, end: 20070317
  2. TAMIFLU [Suspect]
     Route: 048
     Dates: start: 20070318, end: 20070318
  3. TAMIFLU [Suspect]
     Route: 048
     Dates: start: 20070319, end: 20070319
  4. 1 CONCOMITANT DRUG [Concomitant]
     Dosage: REPORTED AS AGENTS USED FOR COMMON COLD.
     Route: 048
  5. NAUZELIN [Concomitant]
     Dosage: FORM: RECTAL SUPPOSITORY.
     Route: 054

REACTIONS (10)
  - ABNORMAL BEHAVIOUR [None]
  - CRYING [None]
  - DECREASED APPETITE [None]
  - DYSKINESIA [None]
  - LOSS OF CONSCIOUSNESS [None]
  - MUSCLE RIGIDITY [None]
  - NAUSEA [None]
  - POOR QUALITY SLEEP [None]
  - STARING [None]
  - UNRESPONSIVE TO STIMULI [None]
